FAERS Safety Report 5120595-2 (Version None)
Quarter: 2006Q4

REPORT INFORMATION
  Report Type: 
  Country: None (occurrence: None)
  Receive Date: 20061004
  Receipt Date: 20060926
  Transmission Date: 20070319
  Serious: Yes (Hospitalization)
  Sender: FDA-Public Use
  Company Number: US-JNJFOC-20060906295

PATIENT
  Age: 65 Year
  Sex: Female

DRUGS (26)
  1. DURAGESIC-100 [Suspect]
     Indication: PAIN
     Route: 062
  2. IRINOTECAN HCL [Suspect]
     Indication: COLON CANCER
     Route: 042
  3. CELECOXIB [Suspect]
     Route: 048
  4. CELECOXIB [Suspect]
     Indication: COLON CANCER
     Route: 048
  5. CAPECITABINE [Suspect]
     Route: 048
  6. CAPECITABINE [Suspect]
     Indication: COLON CANCER
     Route: 048
  7. ULTRAM [Concomitant]
     Route: 048
  8. MARINOL [Concomitant]
     Indication: VOMITING
  9. MARINOL [Concomitant]
     Indication: NAUSEA
  10. ZOFRAN [Concomitant]
     Indication: VOMITING
  11. ZOFRAN [Concomitant]
     Indication: NAUSEA
  12. GRANISETRON [Concomitant]
     Indication: VOMITING
  13. GRANISETRON [Concomitant]
     Indication: NAUSEA
  14. IMODIUM [Concomitant]
  15. MULTI-VITAMIN [Concomitant]
     Route: 048
  16. PROTONIX [Concomitant]
  17. VITAMIN B-12 [Concomitant]
  18. XANAX [Concomitant]
  19. TYLENOL W/ CODEINE NO. 3 [Concomitant]
  20. MIRALAX [Concomitant]
  21. COLACE [Concomitant]
     Indication: CONSTIPATION
  22. SENNA [Concomitant]
     Indication: CONSTIPATION
  23. COMPAZINE [Concomitant]
     Indication: NAUSEA
  24. LEVOFLOXACIN [Concomitant]
     Route: 048
  25. DOLASETRON [Concomitant]
     Route: 048
  26. ATIVAN [Concomitant]
     Route: 048

REACTIONS (1)
  - ILEUS [None]
